FAERS Safety Report 9316350 (Version 1)
Quarter: 2013Q2

REPORT INFORMATION
  Report Type: Report from Study
  Country: CA (occurrence: CA)
  Receive Date: 20130530
  Receipt Date: 20130530
  Transmission Date: 20140414
  Serious: Yes (Other)
  Sender: FDA-Public Use
  Company Number: CA-ABBOTT-11P-028-0717289-00

PATIENT
  Sex: Female
  Weight: 67.8 kg

DRUGS (9)
  1. HUMIRA 40 MG/ 0.8 ML PRE-FILLED SYRINGE [Suspect]
     Indication: PSORIATIC ARTHROPATHY
     Route: 058
     Dates: start: 20091021, end: 20110406
  2. CELEBREX [Concomitant]
     Indication: ARTHRITIS
     Route: 048
     Dates: start: 2006
  3. SYNTHROID [Concomitant]
     Indication: THYROID DISORDER
     Route: 048
     Dates: start: 2000
  4. NORVASC [Concomitant]
     Indication: HYPERTENSION
     Route: 048
  5. LASIX [Concomitant]
     Indication: HYPERTENSION
     Route: 048
  6. PANTOLOC [Concomitant]
     Indication: GASTRIC DISORDER
     Route: 048
  7. CALCIUM [Concomitant]
     Indication: MINERAL SUPPLEMENTATION
     Route: 048
  8. LACTONEL [Concomitant]
     Indication: OSTEOPOROSIS
     Route: 048
  9. ACTONEL [Concomitant]
     Indication: OSTEOPOROSIS
     Route: 048

REACTIONS (2)
  - Skin lesion [Not Recovered/Not Resolved]
  - Neoplasm malignant [Unknown]
